FAERS Safety Report 8696740 (Version 2)
Quarter: 2012Q4

REPORT INFORMATION
  Report Type: Spontaneous
  Country: US (occurrence: None)
  Receive Date: 20120716
  Receipt Date: 20121011
  Transmission Date: 20130627
  Serious: Yes (Other)
  Sender: FDA-Public Use
  Company Number: IPC201207-000307

PATIENT
  Age: 80 Year
  Sex: Female
  Weight: 48.99 kg

DRUGS (5)
  1. METOPROLOL TARTRATE (METOPROLOL TARTRATE) (TABLETS) (METOPROLOL TARTRATE) [Suspect]
     Indication: MYOCARDIAL INFARCTION
     Dosage: 25 MG (12.5 MG 2 TIMES PER DAY), ORAL
     Route: 048
     Dates: start: 20120628
  2. ASPIRIN [Suspect]
     Dates: start: 20120628, end: 20120630
  3. BENICAR WITH ^WATER PILL^ [Concomitant]
  4. ARMOR THYROID [Concomitant]
  5. HORMONES [Concomitant]

REACTIONS (8)
  - Night sweats [None]
  - Abnormal dreams [None]
  - Fatigue [None]
  - Somnolence [None]
  - Dysuria [None]
  - Diarrhoea [None]
  - Nervous system disorder [None]
  - Faecal incontinence [None]
